FAERS Safety Report 8415616-5 (Version None)
Quarter: 2012Q2

REPORT INFORMATION
  Report Type: 
  Country: None (occurrence: None)
  Receive Date: 20120606
  Receipt Date: 20120526
  Transmission Date: 20120825
  Serious: Yes (Hospitalization, Other)
  Sender: FDA-Public Use
  Company Number: US-BRISTOL-MYERS SQUIBB COMPANY-16464448

PATIENT
  Age: 56 Year
  Sex: Male
  Weight: 104 kg

DRUGS (1)
  1. IPILIMUMAB [Suspect]
     Indication: MALIGNANT MELANOMA
     Dosage: LAST DOSE ON 12MAR12,NO OF COURSES: 4
     Route: 042
     Dates: start: 20120109, end: 20120312

REACTIONS (5)
  - ILEUS [None]
  - ADHESION [None]
  - SMALL INTESTINAL OBSTRUCTION [None]
  - RASH MACULO-PAPULAR [None]
  - CARCINOID TUMOUR OF THE APPENDIX [None]
